FAERS Safety Report 9731255 (Version 2)
Quarter: 2013Q4

REPORT INFORMATION
  Report Type: Not Available
  Country: FR (occurrence: FR)
  Receive Date: 20131205
  Receipt Date: 20131205
  Transmission Date: 20140711
  Serious: Yes (Hospitalization)
  Sender: FDA-Public Use
  Company Number: FR-BEH-2013038603

PATIENT
  Age: 59 Year
  Sex: Female

DRUGS (9)
  1. PRIVIGEN [Suspect]
     Dosage: 1.5G/KG PRIVIGEN (90 G ON 3 DAYS)
     Dates: start: 20130821
  2. PRIVIGEN [Suspect]
     Route: 042
     Dates: start: 20131004, end: 20131004
  3. PRIVIGEN [Suspect]
     Route: 042
     Dates: start: 20131005, end: 20131005
  4. PRIVIGEN [Suspect]
     Indication: DERMATOMYOSITIS
     Route: 042
     Dates: start: 20131006, end: 20131006
  5. NOVATREX [Concomitant]
  6. CORTANCYL [Concomitant]
  7. ACTONEL [Concomitant]
  8. SPECIAFOLDINE [Concomitant]
  9. PLAVIX [Concomitant]

REACTIONS (13)
  - Meningitis aseptic [Recovered/Resolved]
  - Chills [Recovered/Resolved]
  - Pyrexia [Recovered/Resolved]
  - Nausea [Recovered/Resolved]
  - Vomiting [Recovered/Resolved]
  - Headache [Recovered/Resolved]
  - Photophobia [Recovered/Resolved]
  - Musculoskeletal stiffness [Recovered/Resolved]
  - Myalgia [Recovered/Resolved]
  - Vertigo [Recovered/Resolved]
  - Headache [Recovered/Resolved]
  - Pyrexia [Recovered/Resolved]
  - Vomiting [Recovered/Resolved]
